FAERS Safety Report 5250011-1 (Version None)
Quarter: 2007Q1

REPORT INFORMATION
  Report Type: 
  Country: None (occurrence: None)
  Receive Date: 20070228
  Receipt Date: 20060124
  Transmission Date: 20070707
  Serious: No
  Sender: FDA-Public Use
  Company Number: US-GLAXOSMITHKLINE-A0590713A

PATIENT
  Age: 47 Year
  Sex: Female

DRUGS (6)
  1. LAMICTAL [Suspect]
     Indication: BIPOLAR DISORDER
     Dosage: 50MG PER DAY
     Route: 048
  2. METFORMIN HCL [Concomitant]
  3. MINOCYCLINE HCL [Concomitant]
  4. WELLBUTRIN [Concomitant]
  5. PHENTERMINE HYDROCHLORIDE [Concomitant]
  6. PHARMATON [Concomitant]

REACTIONS (1)
  - RASH [None]
